FAERS Safety Report 7052914-4 (Version None)
Quarter: 2010Q4

REPORT INFORMATION
  Report Type: 
  Country: None (occurrence: None)
  Receive Date: 20101020
  Receipt Date: 20101012
  Transmission Date: 20110411
  Serious: Yes (Hospitalization)
  Sender: FDA-Public Use
  Company Number: US-BIOGENIDEC-2010BI035614

PATIENT
  Age: 38 Year
  Sex: Male

DRUGS (3)
  1. AVONEX [Suspect]
     Indication: MULTIPLE SCLEROSIS
     Route: 030
     Dates: start: 19960701, end: 19970801
  2. AVONEX [Suspect]
     Route: 030
     Dates: start: 20051016, end: 20090703
  3. AVONEX [Suspect]
     Route: 030

REACTIONS (3)
  - CHEST PAIN [None]
  - CHOLELITHIASIS [None]
  - LIVER DISORDER [None]
